FAERS Safety Report 13971884 (Version 1)
Quarter: 2017Q3

REPORT INFORMATION
  Report Type: Spontaneous
  Country: US (occurrence: US)
  Receive Date: 20170914
  Receipt Date: 20170914
  Transmission Date: 20171128
  Serious: Yes (Other)
  Sender: FDA-Public Use
  Company Number: None

PATIENT
  Age: 60 Year
  Sex: Female
  Weight: 63 kg

DRUGS (6)
  1. PROZAC [Concomitant]
     Active Substance: FLUOXETINE HYDROCHLORIDE
  2. SYNTHROID [Concomitant]
     Active Substance: LEVOTHYROXINE SODIUM
  3. BABY ASPIRIN [Concomitant]
     Active Substance: ASPIRIN
  4. LEVOTHYROCINE [Suspect]
     Active Substance: LEVOTHYROXINE
     Indication: COUGH
     Route: 048
     Dates: start: 20170907, end: 20170912
  5. LEVOTHYROCINE [Suspect]
     Active Substance: LEVOTHYROXINE
     Indication: INFECTION
     Route: 048
     Dates: start: 20170907, end: 20170912
  6. FLONASE [Concomitant]
     Active Substance: FLUTICASONE PROPIONATE

REACTIONS (3)
  - Tendon disorder [None]
  - Cough [None]
  - Tendon pain [None]

NARRATIVE: CASE EVENT DATE: 20170909
